FAERS Safety Report 7234790-X (Version None)
Quarter: 2011Q1

REPORT INFORMATION
  Report Type: 
  Country: None (occurrence: None)
  Receive Date: 20110114
  Receipt Date: 20110114
  Transmission Date: 20110831
  Serious: No
  Sender: FDA-Public Use
  Company Number: None

PATIENT
  Age: 47 Year
  Sex: Male
  Weight: 213.1906 kg

DRUGS (1)
  1. AMITRIPTYLINE HYDROCHLORIDE 10MG MYLAN [Suspect]
     Indication: NECK PAIN
     Dosage: 10  1 AT NIGHT PO
     Route: 048
     Dates: start: 20101101, end: 20101101

REACTIONS (3)
  - OPTIC ISCHAEMIC NEUROPATHY [None]
  - BLINDNESS UNILATERAL [None]
  - PAINFUL ERECTION [None]
